FAERS Safety Report 21156702 (Version 1)
Quarter: 2022Q3

REPORT INFORMATION
  Report Type: Spontaneous
  Country: US (occurrence: US)
  Receive Date: 20220801
  Receipt Date: 20220801
  Transmission Date: 20221027
  Serious: No
  Sender: FDA-Public Use
  Company Number: US-PADAGIS-2022PAD00234

PATIENT

DRUGS (1)
  1. ATROPA BELLADONNA\OPIUM [Suspect]
     Active Substance: ATROPA BELLADONNA\OPIUM
     Indication: Product used for unknown indication
     Dosage: UNK (ONE PER DAY)
     Route: 065
     Dates: start: 20220601

REACTIONS (1)
  - Underdose [Unknown]

NARRATIVE: CASE EVENT DATE: 20220601
